FAERS Safety Report 21667508 (Version 2)
Quarter: 2022Q4

REPORT INFORMATION
  Report Type: Spontaneous
  Country: BE (occurrence: BE)
  Receive Date: 20221201
  Receipt Date: 20221202
  Transmission Date: 20230113
  Serious: Yes (Hospitalization, Other)
  Sender: FDA-Public Use
  Company Number: BE-BAYER-2022P025058

PATIENT
  Age: 31 Year
  Sex: Female

DRUGS (1)
  1. KYLEENA [Suspect]
     Active Substance: LEVONORGESTREL
     Dosage: 17.5?G/DAY
     Route: 015
     Dates: start: 2020

REACTIONS (4)
  - Pregnancy with contraceptive device [None]
  - Premature delivery [None]
  - Amniotic fluid volume decreased [None]
  - Drug ineffective [None]
